FAERS Safety Report 5389155-2 (Version None)
Quarter: 2007Q3

REPORT INFORMATION
  Report Type: 
  Country: None (occurrence: None)
  Receive Date: 20070717
  Receipt Date: 20070712
  Transmission Date: 20080115
  Serious: Yes (Hospitalization)
  Sender: FDA-Public Use
  Company Number: JP-AVENTIS-200711871JP

PATIENT
  Age: 76 Year
  Sex: Male

DRUGS (7)
  1. AMARYL [Suspect]
     Route: 048
  2. BASEN [Concomitant]
  3. AMLODIN [Concomitant]
  4. MICARDIS [Concomitant]
  5. TICLOPIDINE HCL [Concomitant]
  6. ASPIRIN [Concomitant]
  7. GASTER [Concomitant]

REACTIONS (2)
  - BLOOD URINE PRESENT [None]
  - PROTEIN URINE PRESENT [None]
